FAERS Safety Report 7534485-9 (Version None)
Quarter: 2011Q2

REPORT INFORMATION
  Report Type: 
  Country: None (occurrence: None)
  Receive Date: 20110609
  Receipt Date: 20110606
  Transmission Date: 20111010
  Serious: Yes (Life-Threatening, Hospitalization, Other)
  Sender: FDA-Public Use
  Company Number: PHHY2011FR49147

PATIENT
  Age: 40 Year
  Sex: Female

DRUGS (2)
  1. ILARIS [Suspect]
     Indication: STILL'S DISEASE ADULT ONSET
     Dosage: UNK
     Dates: start: 20110201
  2. ILARIS [Suspect]
     Dosage: UNK
     Dates: start: 20110401

REACTIONS (3)
  - RHEUMATOID ARTHRITIS [None]
  - TRANSAMINASES INCREASED [None]
  - HISTIOCYTOSIS HAEMATOPHAGIC [None]
